FAERS Safety Report 8386692-3 (Version None)
Quarter: 2012Q2

REPORT INFORMATION
  Report Type: 
  Country: None (occurrence: None)
  Receive Date: 20120523
  Receipt Date: 20120523
  Transmission Date: 20120825
  Serious: No
  Sender: FDA-Public Use
  Company Number: None

PATIENT

DRUGS (1)
  1. OXYCODONE AND ACETAMINOPHEN [Suspect]
     Indication: RIB FRACTURE
     Dosage: 1 4XDAILY
     Dates: start: 20120504, end: 20120507

REACTIONS (2)
  - PERSONALITY CHANGE [None]
  - AGGRESSION [None]
